FAERS Safety Report 12607790 (Version 1)
Quarter: 2016Q3

REPORT INFORMATION
  Report Type: Spontaneous
  Country: US (occurrence: US)
  Receive Date: 20160729
  Receipt Date: 20160729
  Transmission Date: 20161109
  Serious: Yes (Other)
  Sender: FDA-Public Use
  Company Number: US-LPDUSPRD-20160638

PATIENT
  Age: 70 Year
  Sex: Male

DRUGS (1)
  1. CALCIUM CHLORIDE INJECTION, USP (2701-25) [Suspect]
     Active Substance: CALCIUM CHLORIDE
     Dosage: 1 G
     Route: 042

REACTIONS (3)
  - Extravasation [Unknown]
  - Skin necrosis [Unknown]
  - Skin lesion [Unknown]
